FAERS Safety Report 7142042-1 (Version None)
Quarter: 2010Q4

REPORT INFORMATION
  Report Type: 
  Country: None (occurrence: None)
  Receive Date: 20101207
  Receipt Date: 20101130
  Transmission Date: 20110411
  Serious: Yes (Hospitalization)
  Sender: FDA-Public Use
  Company Number: B0680231A

PATIENT
  Sex: Male

DRUGS (4)
  1. RETROVIR [Suspect]
     Indication: HIV INFECTION
     Dates: start: 20091113, end: 20091224
  2. LOPINAVIR/RITONAVIR [Suspect]
     Indication: HIV INFECTION
     Dates: start: 20090625, end: 20100715
  3. ABACAVIR SULFATE/LAMIVUDINE [Suspect]
     Indication: HIV INFECTION
     Dates: start: 20090625, end: 20100715
  4. ZIDOVUDINE [Suspect]
     Indication: HIV INFECTION
     Dates: start: 20091113

REACTIONS (2)
  - DRUG EXPOSURE DURING PREGNANCY [None]
  - UPPER RESPIRATORY TRACT INFLAMMATION [None]
